FAERS Safety Report 15919336 (Version 2)
Quarter: 2019Q1

REPORT INFORMATION
  Report Type: Spontaneous
  Country: US (occurrence: US)
  Receive Date: 20190205
  Receipt Date: 20190315
  Transmission Date: 20190417
  Serious: Yes (Hospitalization, Disabling, Other)
  Sender: FDA-Public Use
  Company Number: US-GLAXOSMITHKLINE-US2019GSK016729

PATIENT
  Age: 66 Year
  Sex: Female
  Weight: 47.62 kg

DRUGS (2)
  1. VENTOLIN HFA [Suspect]
     Active Substance: ALBUTEROL SULFATE
     Indication: CHRONIC OBSTRUCTIVE PULMONARY DISEASE
     Dosage: UNK
     Route: 055
     Dates: start: 1999
  2. VENTOLIN HFA [Suspect]
     Active Substance: ALBUTEROL SULFATE
     Indication: ASTHMA

REACTIONS (6)
  - Medical induction of coma [Unknown]
  - Immune system disorder [Unknown]
  - Respiratory disorder [Unknown]
  - Aspergillus infection [Unknown]
  - Haemoptysis [Unknown]
  - Disability [Unknown]

NARRATIVE: CASE EVENT DATE: 2016
